FAERS Safety Report 20040602 (Version 1)
Quarter: 2021Q4

REPORT INFORMATION
  Report Type: Spontaneous
  Country: US (occurrence: None)
  Receive Date: 20211107
  Receipt Date: 20211107
  Transmission Date: 20220304
  Serious: Yes (Life-Threatening, Hospitalization, Disabling)
  Sender: FDA-Public Use
  Company Number: None

PATIENT
  Age: 48 Year
  Sex: Female
  Weight: 83.2 kg

DRUGS (6)
  1. POMALYST [Suspect]
     Active Substance: POMALIDOMIDE
     Indication: Plasma cell myeloma
     Dosage: FREQUENCY : DAILY;?
     Route: 048
     Dates: start: 20210826
  2. daratumumab/bortezomib/thalidomide/dexamethasone [Concomitant]
     Dates: start: 20210412, end: 20210913
  3. cisplatin/cyclophosphamide/etoposide/dexamethasone [Concomitant]
     Dates: start: 20210609, end: 20210709
  4. cyclophosphamide/mesna/vincristine/doxorubicin/dexamethasone [Concomitant]
     Dates: start: 20210710, end: 20210804
  5. pomalidomide (never received)/carfilzomib/dexamethasone [Concomitant]
     Dates: start: 20210824, end: 20210918
  6. CARFILZOMIB [Suspect]
     Active Substance: CARFILZOMIB

REACTIONS (4)
  - Muscular weakness [None]
  - Paraplegia [None]
  - Disease progression [None]
  - Spinal cord neoplasm [None]

NARRATIVE: CASE EVENT DATE: 20210914
